FAERS Safety Report 9297780 (Version 2)
Quarter: 2013Q2

REPORT INFORMATION
  Report Type: Spontaneous
  Country: US (occurrence: None)
  Receive Date: 20130515
  Receipt Date: 20130531
  Transmission Date: 20140414
  Serious: Yes (Other)
  Sender: FDA-Public Use
  Company Number: JPI-P-031747

PATIENT
  Age: 51 Year
  Sex: Female
  Weight: 65.77 kg

DRUGS (12)
  1. XYREM [Suspect]
     Indication: FIBROMYALGIA
     Dosage: 4.5 (2.25GM, 2 IN 1D) ORAL
     Route: 048
     Dates: start: 20080218
  2. XYREM [Suspect]
     Indication: CHRONIC FATIGUE SYNDROME
     Dosage: 4.5 (2.25GM, 2 IN 1D) ORAL
     Route: 048
     Dates: start: 20080218
  3. FLUOXETINE HYDROCHLORIDE [Concomitant]
  4. CYCLOBENZAPRINE HYDROCHLORIDE [Concomitant]
  5. KETOCONAZOLE (SHAMPOO) [Concomitant]
  6. FLUTICASONE PROPIONATE (SPRAY) [Concomitant]
  7. LORATADINE [Concomitant]
  8. THYROID [Concomitant]
  9. OMEGA-3 ACID ETHYL ESTERS [Concomitant]
  10. MULTIVITAMINS [Concomitant]
  11. MIRTAZAPINE [Concomitant]
  12. QUETIAPINE FUMARATE [Concomitant]

REACTIONS (3)
  - Drug tolerance [None]
  - Drug ineffective [None]
  - Insomnia [None]
